FAERS Safety Report 6960147-2 (Version None)
Quarter: 2010Q3

REPORT INFORMATION
  Report Type: 
  Country: None (occurrence: None)
  Receive Date: 20100901
  Receipt Date: 20100818
  Transmission Date: 20110219
  Serious: Yes (Death, Hospitalization, Other)
  Sender: FDA-Public Use
  Company Number: US-NAPPMUNDI-GBR-2010-0006953

PATIENT
  Age: 40 Year
  Sex: Male

DRUGS (1)
  1. POVIDONE IODINE [Suspect]
     Indication: BURN DRESSING
     Dosage: 5%
     Route: 061

REACTIONS (6)
  - BLOOD OSMOLARITY INCREASED [None]
  - BLOOD TRIGLYCERIDES INCREASED [None]
  - DRUG LEVEL INCREASED [None]
  - NERVOUS SYSTEM DISORDER [None]
  - SEPSIS [None]
  - STATUS EPILEPTICUS [None]
